FAERS Safety Report 8933799 (Version 3)
Quarter: 2012Q4

REPORT INFORMATION
  Report Type: 
  Country: US (occurrence: US)
  Receive Date: 20121129
  Receipt Date: 20121228
  Transmission Date: 20130627
  Serious: Yes (Other)
  Sender: FDA-Public Use
  Company Number: US-UCBSA-071946

PATIENT
  Age: 38 Year
  Sex: Female
  Weight: 65 kg

DRUGS (1)
  1. CIMZIA [Suspect]
     Indication: CROHN^S DISEASE
     Dosage: INITIAL DOSE:0, 2, 4. MAINTENENCE 400 MG ONCE EVERY 4 WEEK.
     Dates: start: 20121112, end: 2012

REACTIONS (3)
  - Dyspnoea [Recovered/Resolved]
  - Chest discomfort [Recovered/Resolved]
  - Rash [Recovered/Resolved]
